FAERS Safety Report 16572661 (Version 3)
Quarter: 2020Q1

REPORT INFORMATION
  Report Type: Spontaneous
  Country: US (occurrence: US)
  Receive Date: 20190715
  Receipt Date: 20200103
  Transmission Date: 20200409
  Serious: Yes (Death, Other)
  Sender: FDA-Public Use
  Company Number: US-SA-2019SA187305

PATIENT
  Age: 55 Year
  Sex: Male

DRUGS (1)
  1. KEVZARA [Suspect]
     Active Substance: SARILUMAB
     Dosage: 200 MG, QOW
     Route: 058

REACTIONS (2)
  - Death [Fatal]
  - Knee operation [Unknown]

NARRATIVE: CASE EVENT DATE: 201907
